FAERS Safety Report 6558476-X (Version None)
Quarter: 2010Q1

REPORT INFORMATION
  Report Type: 
  Country: None (occurrence: None)
  Receive Date: 20100128
  Receipt Date: 20100128
  Transmission Date: 20100710
  Serious: Yes (Other)
  Sender: FDA-Public Use
  Company Number: None

PATIENT
  Age: 33 Year
  Sex: Male
  Weight: 74.8435 kg

DRUGS (1)
  1. LEVAQUIN [Suspect]
     Indication: SINUSITIS
     Dosage: 14 TBLETS 1/DAY
     Dates: start: 20091230, end: 20100101

REACTIONS (2)
  - IMPAIRED WORK ABILITY [None]
  - TENDONITIS [None]
